FAERS Safety Report 10029769 (Version 1)
Quarter: 2014Q1

REPORT INFORMATION
  Report Type: Spontaneous
  Country: US (occurrence: None)
  Receive Date: 20140321
  Receipt Date: 20140321
  Transmission Date: 20141002
  Serious: Yes (Life-Threatening, Hospitalization)
  Sender: FDA-Public Use
  Company Number: None

PATIENT
  Age: 59 Year
  Sex: Female
  Weight: 68.04 kg

DRUGS (4)
  1. TEMODAR [Suspect]
     Indication: GLIOBLASTOMA MULTIFORME
     Dosage: FOR 42 DAYS  QD ORAL
     Route: 048
     Dates: start: 20131110, end: 20131227
  2. ANTI-SEIZURE MEDICATIONS [Concomitant]
  3. NEUPOGEN [Concomitant]
  4. EPOGEN [Concomitant]

REACTIONS (2)
  - Brain tumour operation [None]
  - Radiotherapy [None]
